FAERS Safety Report 23749261 (Version 1)
Quarter: 2024Q2

REPORT INFORMATION
  Report Type: Spontaneous
  Country: US (occurrence: US)
  Receive Date: 20240416
  Receipt Date: 20240416
  Transmission Date: 20240715
  Serious: No
  Sender: FDA-Public Use
  Company Number: US-JNJFOC-20240435776

PATIENT
  Age: 8 Decade
  Sex: Female

DRUGS (2)
  1. WOMENS ROGAINE [Suspect]
     Active Substance: MINOXIDIL
     Indication: Alopecia
     Route: 061
  2. PROLIA [Concomitant]
     Active Substance: DENOSUMAB
     Indication: Scoliosis
     Route: 065

REACTIONS (3)
  - Application site pruritus [Unknown]
  - Pruritus [Unknown]
  - Inappropriate schedule of product administration [Unknown]
